FAERS Safety Report 6132800-4 (Version None)
Quarter: 2009Q1

REPORT INFORMATION
  Report Type: 
  Country: None (occurrence: None)
  Receive Date: 20090325
  Receipt Date: 20090325
  Transmission Date: 20090719
  Serious: Yes (Hospitalization)
  Sender: FDA-Public Use
  Company Number: None

PATIENT
  Age: 81 Year
  Sex: Male
  Weight: 97.2 kg

DRUGS (1)
  1. GLIPIZIDE [Suspect]
     Indication: DIABETES MELLITUS
     Dosage: 2.5 MG EVERY DAY PO
     Route: 048
     Dates: start: 20070913, end: 20090323

REACTIONS (2)
  - HYPOGLYCAEMIA [None]
  - MENTAL STATUS CHANGES [None]
